FAERS Safety Report 14645896 (Version 1)
Quarter: 2018Q1

REPORT INFORMATION
  Report Type: Report from Study
  Country: US (occurrence: US)
  Receive Date: 20180316
  Receipt Date: 20180316
  Transmission Date: 20180509
  Serious: Yes (Hospitalization, Other)
  Sender: FDA-Public Use
  Company Number: US-BRISTOL-MYERS SQUIBB COMPANY-BMS-2018-022913

PATIENT
  Age: 73 Year
  Sex: Female
  Weight: 59.5 kg

DRUGS (4)
  1. IPILIMUMAB [Suspect]
     Active Substance: IPILIMUMAB
     Indication: PRODUCT USED FOR UNKNOWN INDICATION
     Dosage: 59 MG, UNK
     Route: 042
     Dates: start: 20180110
  2. NIVOLUMAB [Suspect]
     Active Substance: NIVOLUMAB
     Indication: PAPILLARY THYROID CANCER
     Dosage: 240 MG, UNK
     Route: 042
     Dates: start: 20171129
  3. NIVOLUMAB [Suspect]
     Active Substance: NIVOLUMAB
     Indication: PRODUCT USED FOR UNKNOWN INDICATION
     Dosage: 480 UNK, UNK
     Route: 042
     Dates: start: 20180110, end: 20180124
  4. IPILIMUMAB [Suspect]
     Active Substance: IPILIMUMAB
     Indication: PAPILLARY THYROID CANCER
     Dosage: 1 MG/KG, UNK
     Route: 042
     Dates: start: 20171129

REACTIONS (3)
  - Diarrhoea [Recovering/Resolving]
  - Colitis [Recovering/Resolving]
  - Dehydration [Recovering/Resolving]

NARRATIVE: CASE EVENT DATE: 20180130
